FAERS Safety Report 4326210-X (Version None)
Quarter: 2004Q1

REPORT INFORMATION
  Report Type: 
  Country: None (occurrence: None)
  Receive Date: 20040324
  Receipt Date: 20040318
  Transmission Date: 20041129
  Serious: Yes (Life-Threatening, Other)
  Sender: FDA-Public Use
  Company Number: ITWYE650918MAR04

PATIENT
  Age: 84 Year
  Sex: Female

DRUGS (1)
  1. TAZOCIN (PIPERACILLIN/TAZOBACTAM, INJECTION) [Suspect]
     Indication: UPPER RESPIRATORY TRACT INFECTION
     Dosage: 4 G 1 X PER 1 DAY
     Route: 030
     Dates: start: 20040308, end: 20040308

REACTIONS (4)
  - ANAPHYLACTIC SHOCK [None]
  - ANGIONEUROTIC OEDEMA [None]
  - LARYNGOSPASM [None]
  - RASH [None]
